FAERS Safety Report 5990695-3 (Version None)
Quarter: 2008Q4

REPORT INFORMATION
  Report Type: 
  Country: None (occurrence: None)
  Receive Date: 20081211
  Receipt Date: 20081202
  Transmission Date: 20090506
  Serious: Yes (Other)
  Sender: FDA-Public Use
  Company Number: PHHY2008JP02291

PATIENT
  Age: 60 Year
  Sex: Male

DRUGS (5)
  1. DIOVAN [Suspect]
     Indication: HYPERTENSION
     Dosage: 80 MG, QD
     Route: 048
     Dates: start: 20031001, end: 20080201
  2. DIOVAN [Suspect]
     Dosage: 40MG/DAY
     Route: 048
     Dates: start: 20080201
  3. ALLOTOP-L [Suspect]
     Dosage: 10 MG/DAY
     Route: 048
     Dates: start: 20070401
  4. ALLOTOP-L [Suspect]
     Dosage: 20MG/DAY
     Route: 048
  5. ADALAT [Concomitant]

REACTIONS (1)
  - CEREBRAL ISCHAEMIA [None]
